FAERS Safety Report 13080038 (Version 3)
Quarter: 2017Q3

REPORT INFORMATION
  Report Type: Spontaneous
  Country: GB (occurrence: GB)
  Receive Date: 20170103
  Receipt Date: 20170706
  Transmission Date: 20171127
  Serious: Yes (Death, Other)
  Sender: FDA-Public Use
  Company Number: GB-DRREDDYS-GER/UKI/16/0085838

PATIENT
  Sex: Female

DRUGS (1)
  1. OLANZAPINE. [Suspect]
     Active Substance: OLANZAPINE
     Indication: PRODUCT USED FOR UNKNOWN INDICATION
     Dosage: MORNING AND NIGHT
     Dates: start: 201507

REACTIONS (10)
  - Trance [Fatal]
  - Completed suicide [Fatal]
  - Hallucination, auditory [Fatal]
  - Altered state of consciousness [Fatal]
  - Suicidal ideation [Fatal]
  - Bipolar I disorder [Fatal]
  - Depression suicidal [Fatal]
  - General symptom [Unknown]
  - General physical health deterioration [Fatal]
  - Mental disorder [Unknown]

NARRATIVE: CASE EVENT DATE: 20151007
